FAERS Safety Report 21420452 (Version 1)
Quarter: 2022Q4

REPORT INFORMATION
  Report Type: Spontaneous
  Country: FR (occurrence: FR)
  Receive Date: 20221007
  Receipt Date: 20221007
  Transmission Date: 20230112
  Serious: Yes (Hospitalization)
  Sender: FDA-Public Use
  Company Number: FR-BAXTER-2022BAX020446

PATIENT
  Age: 80 Year
  Sex: Male

DRUGS (2)
  1. OLIMEL E [Suspect]
     Active Substance: AMINO ACIDS\DEXTROSE\ELECTROLYTES NOS\SOYBEAN OIL
     Indication: Parenteral nutrition
     Dosage: FLOW RATE OF 2L/24H OR 1L/12H
     Route: 042
     Dates: start: 20220922, end: 20220923
  2. OLIMEL E [Suspect]
     Active Substance: AMINO ACIDS\DEXTROSE\ELECTROLYTES NOS\SOYBEAN OIL
     Indication: Starvation

REACTIONS (6)
  - Extravasation [Not Recovered/Not Resolved]
  - Pain in extremity [Not Recovered/Not Resolved]
  - Feeling hot [Unknown]
  - Induration [Unknown]
  - Oedema [Unknown]
  - Skin lesion [Unknown]

NARRATIVE: CASE EVENT DATE: 20220923
